FAERS Safety Report 13255738 (Version 1)
Quarter: 2017Q1

REPORT INFORMATION
  Report Type: Report from Study
  Country: US (occurrence: US)
  Receive Date: 20170221
  Receipt Date: 20170221
  Transmission Date: 20170428
  Serious: Yes (Hospitalization, Other)
  Sender: FDA-Public Use
  Company Number: US-AMGEN-USASL2017025426

PATIENT
  Age: 88 Year
  Sex: Female
  Weight: 43 kg

DRUGS (6)
  1. PROLIA [Suspect]
     Active Substance: DENOSUMAB
     Indication: INJURY
     Dosage: 60 MG, Q6MO
     Route: 058
  2. LISINOPRIL. [Concomitant]
     Active Substance: LISINOPRIL
     Dosage: 2.5 MG, QD
  3. CALCIUM [Concomitant]
     Active Substance: CALCIUM
     Dosage: UNK
  4. METOPROLOL. [Concomitant]
     Active Substance: METOPROLOL
     Dosage: 12.5 MG, BID
  5. VITAMIN D3 [Concomitant]
     Active Substance: CHOLECALCIFEROL
     Dosage: UNK
  6. PROLIA [Suspect]
     Active Substance: DENOSUMAB
     Indication: OSTEOPOROTIC FRACTURE

REACTIONS (3)
  - Compression fracture [Unknown]
  - Pain [Unknown]
  - Off label use [Unknown]

NARRATIVE: CASE EVENT DATE: 20170210
